FAERS Safety Report 5531765-3 (Version None)
Quarter: 2007Q4

REPORT INFORMATION
  Report Type: 
  Country: None (occurrence: None)
  Receive Date: 20071203
  Receipt Date: 20071121
  Transmission Date: 20080405
  Serious: Yes (Death)
  Sender: FDA-Public Use
  Company Number: IR-GENENTECH-251934

PATIENT
  Age: 41 Year
  Sex: Female

DRUGS (2)
  1. AVASTIN [Suspect]
     Indication: BREAST CANCER
     Dosage: 7.5 UNK, UNK
  2. XELODA [Suspect]
     Indication: BREAST CANCER
     Dosage: 2500 MG, UNK
     Route: 048

REACTIONS (2)
  - DISEASE PROGRESSION [None]
  - DYSPNOEA [None]
